FAERS Safety Report 5562706-0 (Version None)
Quarter: 2007Q4

REPORT INFORMATION
  Report Type: 
  Country: None (occurrence: None)
  Receive Date: 20071217
  Receipt Date: 20071207
  Transmission Date: 20080405
  Serious: Yes (Other)
  Sender: FDA-Public Use
  Company Number: US-BAYER-200714086BCC

PATIENT
  Age: 7 Year
  Sex: Male

DRUGS (1)
  1. RID SHAMPOO + CONDITIONER [Suspect]
     Indication: LICE INFESTATION
     Route: 061
     Dates: start: 20071101

REACTIONS (4)
  - AFFECT LABILITY [None]
  - CONVULSION [None]
  - RETCHING [None]
  - TREMOR [None]
